FAERS Safety Report 12202168 (Version 1)
Quarter: 2016Q1

REPORT INFORMATION
  Report Type: Spontaneous
  Country: US (occurrence: US)
  Receive Date: 20160322
  Receipt Date: 20160322
  Transmission Date: 20160526
  Serious: Yes (Disabling)
  Sender: FDA-Public Use
  Company Number: GXBR2011US02635

PATIENT
  Sex: Female

DRUGS (1)
  1. METOCLOPRAMIDE TABLETS USP [Suspect]
     Active Substance: METOCLOPRAMIDE
     Indication: PRODUCT USED FOR UNKNOWN INDICATION
     Dosage: UNK DF, UNK
     Route: 065
     Dates: start: 199201, end: 200406

REACTIONS (1)
  - Tardive dyskinesia [Unknown]
